FAERS Safety Report 9541499 (Version 1)
Quarter: 2013Q3

REPORT INFORMATION
  Report Type: Spontaneous
  Country: US (occurrence: None)
  Receive Date: 20130919
  Receipt Date: 20130919
  Transmission Date: 20140515
  Serious: No
  Sender: FDA-Public Use
  Company Number: None

PATIENT
  Age: 61 Year
  Sex: Female
  Weight: 93.2 kg

DRUGS (1)
  1. SYNTHROID [Suspect]
     Indication: HYPOTHYROIDISM
     Dosage: SYNTHROID 100 MCG 1 TAB QAM PO?
     Route: 048
     Dates: start: 20130522, end: 20130904

REACTIONS (2)
  - Blood thyroid stimulating hormone increased [None]
  - Product counterfeit [None]
